FAERS Safety Report 9398488 (Version 4)
Quarter: 2013Q4

REPORT INFORMATION
  Report Type: Report from Study
  Country: DE (occurrence: DE)
  Receive Date: 20130712
  Receipt Date: 20131105
  Transmission Date: 20140711
  Serious: Yes (Life-Threatening, Hospitalization, Other)
  Sender: FDA-Public Use
  Company Number: DE-PFIZER INC-2013197617

PATIENT
  Age: 56 Year
  Sex: Female
  Weight: 68.9 kg

DRUGS (5)
  1. TOFACITINIB CITRATE [Suspect]
     Indication: PSORIASIS
     Dosage: 10 MG, 2X/DAY
     Route: 048
     Dates: start: 20120119, end: 20130106
  2. TOFACITINIB CITRATE [Suspect]
     Dosage: 5 MG, 2X/DAY
     Route: 048
     Dates: start: 20130107, end: 20130409
  3. TOFACITINIB CITRATE [Suspect]
     Dosage: 10 MG, 2X/DAY
     Route: 048
     Dates: start: 20130410, end: 20130604
  4. DICLOFENAC [Concomitant]
     Indication: OSTEOARTHRITIS
     Dosage: 50 MG, AS NEEDED
     Route: 048
     Dates: start: 201101
  5. XARELTO [Concomitant]
     Indication: PULMONARY EMBOLISM
     Dosage: 15 MG, 2X/DAY
     Route: 048
     Dates: start: 20130608

REACTIONS (2)
  - Gallbladder cancer [Not Recovered/Not Resolved]
  - Metastases to liver [Not Recovered/Not Resolved]
